FAERS Safety Report 7609640-X (Version None)
Quarter: 2011Q3

REPORT INFORMATION
  Report Type: 
  Country: None (occurrence: None)
  Receive Date: 20110714
  Receipt Date: 20110706
  Transmission Date: 20111222
  Serious: Yes (Hospitalization)
  Sender: FDA-Public Use
  Company Number: FR-BRISTOL-MYERS SQUIBB COMPANY-15888290

PATIENT
  Age: 62 Year
  Sex: Female
  Weight: 49 kg

DRUGS (3)
  1. COUMADIN [Suspect]
     Dates: end: 20110301
  2. DIGOXIN [Concomitant]
     Dosage: TABS
  3. ALDACTAZINE [Concomitant]
     Dosage: 1DF:1 UNS

REACTIONS (3)
  - PNEUMONIA [None]
  - MELAENA [None]
  - ANAEMIA [None]
